FAERS Safety Report 8318524-3 (Version None)
Quarter: 2012Q2

REPORT INFORMATION
  Report Type: 
  Country: None (occurrence: None)
  Receive Date: 20120427
  Receipt Date: 20120416
  Transmission Date: 20120825
  Serious: Yes (Hospitalization)
  Sender: FDA-Public Use
  Company Number: FR-GLAXOSMITHKLINE-B0795857A

PATIENT
  Sex: Female

DRUGS (6)
  1. TAXOTERE [Suspect]
     Indication: GERM CELL CANCER
     Dosage: 150MG PER DAY
     Route: 042
     Dates: start: 20120110, end: 20120110
  2. GEMZAR [Suspect]
     Indication: GERM CELL CANCER
     Dosage: 1100MG PER DAY
     Route: 042
     Dates: start: 20120110, end: 20120110
  3. ATARAX [Suspect]
     Indication: PREMEDICATION
     Dosage: 50MG PER DAY
     Route: 048
     Dates: start: 20120110, end: 20120110
  4. SOLU-MEDROL [Suspect]
     Indication: PREMEDICATION
     Dosage: 60MG PER DAY
     Route: 042
     Dates: start: 20120110, end: 20120110
  5. PLITICAN [Suspect]
     Indication: ANTIEMETIC SUPPORTIVE CARE
     Route: 042
     Dates: start: 20120110, end: 20120110
  6. ZOFRAN [Suspect]
     Indication: ANTIEMETIC SUPPORTIVE CARE
     Route: 048
     Dates: start: 20120110, end: 20120110

REACTIONS (3)
  - ERYTHEMA [None]
  - ARTHRALGIA [None]
  - PURPURA [None]
